FAERS Safety Report 7866914-5 (Version None)
Quarter: 2011Q4

REPORT INFORMATION
  Report Type: 
  Country: None (occurrence: None)
  Receive Date: 20111028
  Receipt Date: 20111019
  Transmission Date: 20120403
  Serious: Yes (Death)
  Sender: FDA-Public Use
  Company Number: JP-ROCHE-1006206

PATIENT
  Sex: Female
  Weight: 56 kg

DRUGS (2)
  1. NEUTROGIN [Concomitant]
     Indication: GRANULOCYTE COUNT DECREASED
     Route: 042
  2. TAMIFLU [Suspect]
     Indication: INFLUENZA
     Route: 048
     Dates: start: 20110110, end: 20110115

REACTIONS (1)
  - HEPATITIS FULMINANT [None]
